FAERS Safety Report 22092817 (Version 1)
Quarter: 2023Q1

REPORT INFORMATION
  Report Type: Spontaneous
  Country: NL (occurrence: NL)
  Receive Date: 20230314
  Receipt Date: 20230314
  Transmission Date: 20230417
  Serious: Yes (Other)
  Sender: FDA-Public Use
  Company Number: NL-BRISTOL-MYERS SQUIBB COMPANY-2022-157512

PATIENT
  Age: 36 Year
  Sex: Female

DRUGS (1)
  1. APIXABAN [Suspect]
     Active Substance: APIXABAN
     Indication: Product used for unknown indication
     Dosage: 2.5 MILLIGRAM, BID (0.5 DAY)
     Route: 065

REACTIONS (6)
  - Systemic lupus erythematosus [Recovering/Resolving]
  - Abortion spontaneous [Recovered/Resolved]
  - Bed bug infestation [Unknown]
  - Rash [Unknown]
  - Contusion [Unknown]
  - Maternal exposure during pregnancy [Recovered/Resolved]

NARRATIVE: CASE EVENT DATE: 20220101
